FAERS Safety Report 23738006 (Version 1)
Quarter: 2024Q2

REPORT INFORMATION
  Report Type: Spontaneous
  Country: US (occurrence: None)
  Receive Date: 20240412
  Receipt Date: 20240412
  Transmission Date: 20240716
  Serious: Yes (Hospitalization)
  Sender: FDA-Public Use
  Company Number: None

PATIENT
  Sex: Female

DRUGS (3)
  1. PULMOZYME [Suspect]
     Active Substance: DORNASE ALFA
     Indication: Cystic fibrosis
     Dosage: 1MG ONCE A DAY INHALATION?
     Route: 055
     Dates: start: 20231212
  2. TOBRAMYCIN [Suspect]
     Active Substance: TOBRAMYCIN\TOBRAMYCIN SULFATE
     Indication: Cystic fibrosis
     Dosage: 300MG BID INHALATION
     Route: 055
     Dates: start: 20231219
  3. PROLIA [Concomitant]
     Active Substance: DENOSUMAB

REACTIONS (3)
  - Pneumonia [None]
  - Fatigue [None]
  - Therapy interrupted [None]
